FAERS Safety Report 16366026 (Version 1)
Quarter: 2019Q2

REPORT INFORMATION
  Report Type: Spontaneous
  Country: DE (occurrence: DE)
  Receive Date: 20190529
  Receipt Date: 20190529
  Transmission Date: 20190711
  Serious: Yes (Death, Other)
  Sender: FDA-Public Use
  Company Number: DE-SANOFI-AVENTIS-2012SA060154

PATIENT
  Age: 14 Year
  Sex: Female

DRUGS (2)
  1. FRISIUM [Suspect]
     Active Substance: CLOBAZAM
     Indication: SEDATION
     Dosage: 2.5 MG,1X
     Route: 048
     Dates: start: 1982, end: 1982
  2. FERRLECIT [Suspect]
     Active Substance: SODIUM FERRIC GLUCONATE COMPLEX
     Dosage: UNK UNK,UNK
     Route: 042
     Dates: start: 1980, end: 1982

REACTIONS (2)
  - Aspiration [Fatal]
  - Areflexia [Fatal]

NARRATIVE: CASE EVENT DATE: 1982
